FAERS Safety Report 25527460 (Version 1)
Quarter: 2025Q3

REPORT INFORMATION
  Report Type: Spontaneous
  Country: US (occurrence: US)
  Receive Date: 20250708
  Receipt Date: 20250708
  Transmission Date: 20251021
  Serious: No
  Sender: BRISTOL-MYERS SQUIBB COMPANY
  Company Number: US-BRISTOL-MYERS SQUIBB COMPANY-2025-095793

PATIENT
  Age: 32 Year
  Sex: Male

DRUGS (3)
  1. ZEPOSIA [Suspect]
     Active Substance: OZANIMOD HYDROCHLORIDE
     Indication: Colitis ulcerative
     Dosage: 1 TIME A DAY FOR 4 DAYS
     Route: 048
     Dates: start: 202506
  2. ZEPOSIA [Suspect]
     Active Substance: OZANIMOD HYDROCHLORIDE
     Dosage: 1 TIME A DAY FOR 3 DAYS
     Route: 048
     Dates: start: 202506
  3. ZEPOSIA [Suspect]
     Active Substance: OZANIMOD HYDROCHLORIDE
     Route: 048
     Dates: start: 202506

REACTIONS (2)
  - Wheezing [Unknown]
  - Dyspnoea [Unknown]
